FAERS Safety Report 4754201-3 (Version None)
Quarter: 2005Q3

REPORT INFORMATION
  Report Type: 
  Country: None (occurrence: None)
  Receive Date: 20050826
  Receipt Date: 20050824
  Transmission Date: 20060218
  Serious: Yes (Death, Hospitalization)
  Sender: FDA-Public Use
  Company Number: GB-SANOFI-SYNTHELABO-F01200501664

PATIENT
  Sex: Male
  Weight: 80 kg

DRUGS (6)
  1. OXALIPLATIN [Suspect]
     Indication: COLORECTAL CANCER METASTATIC
     Route: 042
     Dates: start: 20050526, end: 20050526
  2. CAPECITABINE [Suspect]
     Dosage: 1000 MG/M2 PO BID DAYS 1-14, Q3W
     Route: 048
     Dates: start: 20050526, end: 20050601
  3. OMEPRAZOLE [Concomitant]
     Dosage: 20 MG
     Route: 048
     Dates: end: 20050610
  4. BENDROFLUAZIDE [Concomitant]
     Dosage: 2.5 MG
     Route: 048
     Dates: end: 20050610
  5. PRAVASTATIN [Concomitant]
     Dosage: 10 MG
     Route: 048
     Dates: end: 20050610
  6. DEXAMETHASONE [Concomitant]
     Dosage: 8 MG
     Route: 048
     Dates: start: 20050509, end: 20050610

REACTIONS (4)
  - FALL [None]
  - GASTROINTESTINAL HAEMORRHAGE [None]
  - INTESTINAL PERFORATION [None]
  - RECTAL HAEMORRHAGE [None]
